FAERS Safety Report 19839590 (Version 1)
Quarter: 2021Q3

REPORT INFORMATION
  Report Type: Spontaneous
  Country: US (occurrence: US)
  Receive Date: 20210914
  Receipt Date: 20210914
  Transmission Date: 20211014
  Serious: Yes (Hospitalization)
  Sender: FDA-Public Use
  Company Number: None

PATIENT
  Sex: Female

DRUGS (1)
  1. OCTREOTIDE ++1 ML SDV 100MCG/ML APP/FRESENIUS KABI [Suspect]
     Active Substance: OCTREOTIDE ACETATE
     Indication: BENIGN PANCREATIC NEOPLASM
     Route: 058
     Dates: start: 202108

REACTIONS (8)
  - Diarrhoea [None]
  - Eye irritation [None]
  - Rash [None]
  - Dehydration [None]
  - Pruritus [None]
  - Dry skin [None]
  - Muscle spasms [None]
  - Flatulence [None]
